FAERS Safety Report 7007793-8 (Version None)
Quarter: 2010Q3

REPORT INFORMATION
  Report Type: 
  Country: None (occurrence: None)
  Receive Date: 20100922
  Receipt Date: 20100914
  Transmission Date: 20110219
  Serious: Yes (Hospitalization)
  Sender: FDA-Public Use
  Company Number: NL-ROCHE-710425

PATIENT
  Sex: Male
  Weight: 92.5 kg

DRUGS (3)
  1. BEVACIZUMAB [Suspect]
     Indication: METASTATIC RENAL CELL CARCINOMA
     Dosage: DATE OF LAST DOSE PRIOR TO SAE:08 JUNE 2010, PERMANENTLY DISCONTINUED.
     Route: 042
     Dates: start: 20090902, end: 20100618
  2. INTERFERON ALFA-2A [Suspect]
     Indication: METASTATIC RENAL CELL CARCINOMA
     Dosage: AS REPORTED: DOSE 3MIE, DATE OF LAST DOSE PRIOR TO SAE: 16 JUNE 2010, PERMANENTLY DISCONTINUED.
     Route: 058
     Dates: start: 20090902, end: 20100617
  3. ACETAMINOPHEN [Concomitant]
     Dates: start: 20090902

REACTIONS (1)
  - PYREXIA [None]
